FAERS Safety Report 8877572 (Version 1)
Quarter: 2012Q4

REPORT INFORMATION
  Report Type: Spontaneous
  Country: US (occurrence: None)
  Receive Date: 20121026
  Receipt Date: 20121026
  Transmission Date: 20130627
  Serious: No
  Sender: FDA-Public Use
  Company Number: None

PATIENT
  Sex: Male

DRUGS (1)
  1. DEPAKOTE [Suspect]
     Indication: SEIZURES
     Dosage: unknown     po
     Route: 048

REACTIONS (3)
  - Feeling abnormal [None]
  - Somnolence [None]
  - Fatigue [None]
